FAERS Safety Report 6244686-8 (Version None)
Quarter: 2009Q2

REPORT INFORMATION
  Report Type: 
  Country: None (occurrence: None)
  Receive Date: 20090619
  Receipt Date: 20090519
  Transmission Date: 20091009
  Serious: No
  Sender: FDA-Public Use
  Company Number: ALL1-2009-01220

PATIENT
  Age: 55 Year
  Sex: Female
  Weight: 63.4 kg

DRUGS (6)
  1. VYVANSE [Suspect]
     Indication: DRUG USE FOR UNKNOWN INDICATION
     Dosage: 70 MG, 1X/DAY:QD, ORAL ; 90 MG (70MG AND 20 MG CAPSULE), 1X/DAY:QD, ORAL
     Route: 048
     Dates: start: 20090324, end: 20090329
  2. VYVANSE [Suspect]
     Indication: DRUG USE FOR UNKNOWN INDICATION
     Dosage: 70 MG, 1X/DAY:QD, ORAL ; 90 MG (70MG AND 20 MG CAPSULE), 1X/DAY:QD, ORAL
     Route: 048
     Dates: start: 20090330, end: 20090331
  3. PRILOSEC /00661201/ (OMEPRAZOLE) [Concomitant]
  4. IRON (IRON) [Concomitant]
  5. WELLBUTRIN [Concomitant]
  6. ELAVIL /00002202/ (AMITRIPTYLINE HYDROCHLORIDE) [Concomitant]

REACTIONS (4)
  - LIP SWELLING [None]
  - OVERDOSE [None]
  - PALATAL OEDEMA [None]
  - SWOLLEN TONGUE [None]
